FAERS Safety Report 8200831-6 (Version None)
Quarter: 2012Q1

REPORT INFORMATION
  Report Type: 
  Country: None (occurrence: None)
  Receive Date: 20120223
  Receipt Date: 20120213
  Transmission Date: 20120608
  Serious: Yes (Hospitalization)
  Sender: FDA-Public Use
  Company Number: 2012031187

PATIENT
  Age: 66 Year
  Sex: Male

DRUGS (3)
  1. PRIVIGEN [Suspect]
     Indication: PERIPHERAL SENSORIMOTOR NEUROPATHY
     Dosage: 40 G QD
     Route: 042
     Dates: start: 20120130, end: 20120203
  2. STAGID (METFORMIN EMBONATE) [Concomitant]
  3. IRBESARTAN [Concomitant]

REACTIONS (4)
  - ANAEMIA MACROCYTIC [None]
  - ASTHENIA [None]
  - DEPRESSION [None]
  - HAEMOLYSIS [None]
